FAERS Safety Report 24355167 (Version 2)
Quarter: 2024Q4

REPORT INFORMATION
  Report Type: Spontaneous
  Country: US (occurrence: US)
  Receive Date: 20240924
  Receipt Date: 20241011
  Transmission Date: 20250115
  Serious: No
  Sender: ABBVIE
  Company Number: US-ABBVIE-5923958

PATIENT
  Sex: Female

DRUGS (1)
  1. HUMIRA [Suspect]
     Active Substance: ADALIMUMAB
     Indication: Hidradenitis
     Dosage: CITRATE FREE
     Route: 058
     Dates: start: 20240726

REACTIONS (1)
  - Product dispensing error [Unknown]

NARRATIVE: CASE EVENT DATE: 20240101
